FAERS Safety Report 11294611 (Version 1)
Quarter: 2015Q2

REPORT INFORMATION
  Report Type: Spontaneous
  Country: US (occurrence: None)
  Receive Date: 20150623
  Receipt Date: 20150623
  Transmission Date: 20150821
  Serious: Yes (Other)
  Sender: FDA-Public Use
  Company Number: RB-67026-2014

PATIENT
  Sex: Female

DRUGS (1)
  1. MUCINEX DM [Suspect]
     Active Substance: DEXTROMETHORPHAN HYDROBROMIDE\GUAIFENESIN
     Indication: INTENTIONAL PRODUCT MISUSE
     Route: 045

REACTIONS (3)
  - No adverse event [None]
  - Intentional product misuse [None]
  - Wrong technique in drug usage process [None]
